FAERS Safety Report 4896784-9 (Version None)
Quarter: 2006Q1

REPORT INFORMATION
  Report Type: 
  Country: None (occurrence: None)
  Receive Date: 20060126
  Receipt Date: 20060113
  Transmission Date: 20060701
  Serious: Yes (Life-Threatening, Other)
  Sender: FDA-Public Use
  Company Number: 2005171313

PATIENT
  Age: 55 Year
  Sex: Male

DRUGS (10)
  1. XANAX [Suspect]
     Indication: ANXIETY
     Dosage: ORAL
     Route: 048
     Dates: start: 20051014, end: 20051113
  2. NEURONTIN [Suspect]
     Indication: PAIN
     Dosage: ORAL
     Route: 048
     Dates: start: 20050923, end: 20051113
  3. POSACONAZOLE [Suspect]
     Indication: BRONCHOPULMONARY ASPERGILLOSIS
     Dosage: 800 MG (400 MG, 2 IN 1 D), ORAL
     Route: 048
     Dates: start: 20051021, end: 20051115
  4. AMITRIPTYLINE HCL [Suspect]
     Indication: PAIN
     Dosage: ORAL
     Route: 048
     Dates: start: 20050923, end: 20051113
  5. CEFTAZIDIME PENTAHYDRATE [Suspect]
     Indication: PYREXIA
     Dosage: INTRAVENOUS
     Route: 042
     Dates: start: 20051025, end: 20051113
  6. LEVOFLOXACIN [Suspect]
     Indication: PYREXIA
     Dosage: ORAL
     Route: 048
     Dates: start: 20051023, end: 20051113
  7. EFFEXOR [Concomitant]
  8. TRAMADOL HCL [Concomitant]
  9. NEXIUM [Concomitant]
  10. HEPARIN [Concomitant]

REACTIONS (7)
  - ANXIETY [None]
  - CYTOLYTIC HEPATITIS [None]
  - DEPRESSION [None]
  - HEPATIC FAILURE [None]
  - HEPATOSPLENIC CANDIDIASIS [None]
  - PYREXIA [None]
  - RENAL FAILURE [None]
